FAERS Safety Report 5247939-5 (Version None)
Quarter: 2007Q1

REPORT INFORMATION
  Report Type: 
  Country: None (occurrence: None)
  Receive Date: 20070226
  Receipt Date: 20070226
  Transmission Date: 20070707
  Serious: Yes (Other)
  Sender: FDA-Public Use
  Company Number: None

PATIENT
  Age: 8 Year
  Sex: Female
  Weight: 22 kg

DRUGS (1)
  1. VANCOMYCIN [Suspect]
     Indication: MENINGITIS
     Dosage: 330 MG IV
     Route: 042

REACTIONS (2)
  - PRURITUS [None]
  - RASH [None]
